FAERS Safety Report 20083180 (Version 1)
Quarter: 2021Q4

REPORT INFORMATION
  Report Type: Spontaneous
  Country: DE (occurrence: DE)
  Receive Date: 20211117
  Receipt Date: 20211117
  Transmission Date: 20220303
  Serious: Yes (Hospitalization, Other)
  Sender: FDA-Public Use
  Company Number: DE-ADRED-07087-01

PATIENT
  Age: 83 Year
  Sex: Male
  Weight: 81 kg

DRUGS (6)
  1. TORSEMIDE [Suspect]
     Active Substance: TORSEMIDE
     Indication: Product used for unknown indication
     Dosage: 10 MG, 1-0-0-0, TABLETTEN
     Route: 048
  2. PHENPROCOUMON [Suspect]
     Active Substance: PHENPROCOUMON
     Indication: Product used for unknown indication
     Dosage: 3 MG, ACCORDING TO INR, TABLETS
     Route: 048
  3. ATORVASTATIN [Concomitant]
     Active Substance: ATORVASTATIN
     Dosage: 40 MG, 0-0-1-0, TABLETTEN
     Route: 048
  4. EISEN KOMPLEX [Concomitant]
     Dosage: 100 MG, 0-0-1-0, RETARD-KAPSELN
     Route: 048
  5. BISOPROLOL [Concomitant]
     Active Substance: BISOPROLOL
     Dosage: 5 MG, 0.5-0-0.5-0, TABLETTEN
     Route: 048
  6. MIRTAZAPINE [Concomitant]
     Active Substance: MIRTAZAPINE
     Dosage: 15 MG, 0-0-0.5-0, TABLETTEN
     Route: 048

REACTIONS (7)
  - Tachycardia [Unknown]
  - Ventricular arrhythmia [Unknown]
  - Dyspnoea [Unknown]
  - General physical health deterioration [Unknown]
  - Disturbance in attention [Unknown]
  - Product monitoring error [Unknown]
  - International normalised ratio abnormal [Unknown]
